FAERS Safety Report 7558159-3 (Version None)
Quarter: 2011Q2

REPORT INFORMATION
  Report Type: 
  Country: None (occurrence: None)
  Receive Date: 20110620
  Receipt Date: 20110610
  Transmission Date: 20111010
  Serious: Yes (Other)
  Sender: FDA-Public Use
  Company Number: US-ASTRAZENECA-2011SE35590

PATIENT
  Sex: Male

DRUGS (6)
  1. CHANTIX [Suspect]
     Dosage: SPLIT IN HALF
     Route: 048
  2. AMBIEN [Suspect]
     Indication: ANTICOAGULANT THERAPY
  3. REGLAN [Suspect]
  4. AMBIEN [Suspect]
     Indication: CARDIAC DISORDER
  5. PRILOSEC [Suspect]
     Route: 048
  6. VICODIN [Suspect]

REACTIONS (3)
  - ABDOMINAL DISCOMFORT [None]
  - RENAL FAILURE CHRONIC [None]
  - DIALYSIS [None]
